FAERS Safety Report 10144142 (Version 2)
Quarter: 2014Q2

REPORT INFORMATION
  Report Type: Spontaneous
  Country: IT (occurrence: IT)
  Receive Date: 20140430
  Receipt Date: 20140508
  Transmission Date: 20141212
  Serious: Yes (Other)
  Sender: FDA-Public Use
  Company Number: IT-ABBVIE-14P-083-1231733-00

PATIENT
  Age: 34 Year
  Sex: Female

DRUGS (1)
  1. MACLADIN [Suspect]
     Indication: EAR INFECTION
     Route: 048
     Dates: start: 20140410, end: 20140410

REACTIONS (2)
  - Erythema [Recovering/Resolving]
  - Pruritus [Recovering/Resolving]
